FAERS Safety Report 9958056 (Version 2)
Quarter: 2014Q1

REPORT INFORMATION
  Report Type: Report from Study
  Country: US (occurrence: US)
  Receive Date: 20140304
  Receipt Date: 20140304
  Transmission Date: 20141002
  Serious: No
  Sender: FDA-Public Use
  Company Number: US-ABBVIE-13P-163-1073117-00

PATIENT
  Age: 81 Year
  Sex: Female

DRUGS (5)
  1. HUMIRA [Suspect]
     Indication: COLITIS ULCERATIVE
     Dates: start: 20121110
  2. LIALDA [Concomitant]
     Indication: COLITIS ULCERATIVE
     Dosage: 2 TABLETS IN AM AND 2 TABLETS IN PM
  3. FLORASTOR [Concomitant]
     Indication: PRODUCT USED FOR UNKNOWN INDICATION
     Dosage: IN THE AM
  4. DIOVAN [Concomitant]
     Indication: HYPERTENSION
  5. EYE DROPS [Concomitant]
     Indication: GLAUCOMA

REACTIONS (1)
  - Rash morbilliform [Not Recovered/Not Resolved]
